FAERS Safety Report 12659583 (Version 2)
Quarter: 2016Q3

REPORT INFORMATION
  Report Type: Spontaneous
  Country: BR (occurrence: BR)
  Receive Date: 20160817
  Receipt Date: 20160822
  Transmission Date: 20161109
  Serious: Yes (Other)
  Sender: FDA-Public Use
  Company Number: BR-PFIZER INC-2016386509

PATIENT
  Age: 22 Year
  Sex: Female

DRUGS (1)
  1. DEPO-PROVERA [Suspect]
     Active Substance: MEDROXYPROGESTERONE ACETATE
     Dosage: 150 (UNIT NOT PROVIDED), EVERY 3 MONTHS
     Route: 030
     Dates: start: 20150915

REACTIONS (4)
  - Retinal vein occlusion [Unknown]
  - Eye haemorrhage [Unknown]
  - Macular oedema [Unknown]
  - Visual acuity reduced [Unknown]
